FAERS Safety Report 9032120 (Version 1)
Quarter: 2013Q1

REPORT INFORMATION
  Report Type: Report from Study
  Country: CA (occurrence: CA)
  Receive Date: 20130122
  Receipt Date: 20130122
  Transmission Date: 20140127
  Serious: Yes (Other)
  Sender: FDA-Public Use
  Company Number: CA-JNJFOC-20130107083

PATIENT
  Age: 43 Year
  Sex: Female
  Weight: 109 kg

DRUGS (9)
  1. REMICADE [Suspect]
     Indication: RHEUMATOID ARTHRITIS
     Route: 042
     Dates: start: 20120301
  2. METHOTREXATE [Concomitant]
     Route: 065
  3. FOLIC ACID [Concomitant]
     Route: 065
  4. ELAVIL [Concomitant]
     Route: 065
  5. PREDNISONE [Concomitant]
     Route: 065
  6. CABERGOLINE [Concomitant]
     Route: 065
  7. TECTA [Concomitant]
     Route: 065
  8. CIPRODEX [Concomitant]
     Route: 065
  9. MORPHINE [Concomitant]
     Route: 065

REACTIONS (2)
  - Fat necrosis [Not Recovered/Not Resolved]
  - Knee arthroplasty [Unknown]
